FAERS Safety Report 8838510 (Version 2)
Quarter: 2013Q1

REPORT INFORMATION
  Report Type: Spontaneous
  Country: FR (occurrence: FR)
  Receive Date: 20121012
  Receipt Date: 20130118
  Transmission Date: 20140127
  Serious: Yes (Other)
  Sender: FDA-Public Use
  Company Number: PHHY2012FR088660

PATIENT
  Age: 8 Year
  Sex: Female
  Weight: 23 kg

DRUGS (3)
  1. ILARIS [Suspect]
     Indication: FAMILIAL MEDITERRANEAN FEVER
     Dosage: UNK
     Route: 058
  2. COLCHICINE [Concomitant]
     Indication: FAMILIAL MEDITERRANEAN FEVER
     Dosage: 0.5 MG, DAILY
     Route: 048
     Dates: start: 2001
  3. COLCHICINE [Concomitant]
     Dosage: UNK
     Dates: start: 20120706

REACTIONS (6)
  - Pneumococcal infection [Recovered/Resolved]
  - Lobar pneumonia [Recovered/Resolved]
  - Neutrophilia [Unknown]
  - Viral infection [Recovered/Resolved]
  - Pyrexia [Recovered/Resolved]
  - Cough [Recovered/Resolved]
